FAERS Safety Report 25907292 (Version 1)
Quarter: 2025Q4

REPORT INFORMATION
  Report Type: Spontaneous
  Country: US (occurrence: None)
  Receive Date: 20251009
  Receipt Date: 20251009
  Transmission Date: 20260117
  Serious: Yes (Hospitalization)
  Sender: FDA-CTU
  Company Number: None

PATIENT
  Sex: Male

DRUGS (2)
  1. DEVICE [Suspect]
     Active Substance: DEVICE
     Indication: Pulmonary arterial hypertension
     Dosage: OTHER QUANTITY : 60NGM;?OTHER ROUTE : CONTINUOUS;?
     Route: 050
     Dates: start: 20231102
  2. REMODULIN [Suspect]
     Active Substance: TREPROSTINIL
     Indication: Pulmonary arterial hypertension
     Dosage: DOSE: 60 NGM?FREQUENCY: CONTINUOUS
     Route: 042
     Dates: start: 20231102

REACTIONS (4)
  - Cellulitis [None]
  - Intracardiac pressure increased [None]
  - Chest pain [None]
  - Peripheral swelling [None]
